FAERS Safety Report 20719043 (Version 1)
Quarter: 2022Q2

REPORT INFORMATION
  Report Type: Spontaneous
  Country: US (occurrence: None)
  Receive Date: 20220415
  Receipt Date: 20220415
  Transmission Date: 20220720
  Serious: No
  Sender: FDA-Public Use
  Company Number: None

PATIENT
  Age: 8 Year
  Sex: Male
  Weight: 22.68 kg

DRUGS (2)
  1. GUANFACINE [Suspect]
     Active Substance: GUANFACINE
     Indication: Attention deficit hyperactivity disorder
     Route: 048
     Dates: start: 2017, end: 2017
  2. GUANFACINE [Suspect]
     Active Substance: GUANFACINE
     Indication: Anxiety

REACTIONS (4)
  - Anxiety [None]
  - Anger [None]
  - Abnormal behaviour [None]
  - Product substitution issue [None]
